FAERS Safety Report 9477223 (Version 2)
Quarter: 2013Q4

REPORT INFORMATION
  Report Type: Spontaneous
  Country: PT (occurrence: PT)
  Receive Date: 20130826
  Receipt Date: 20131008
  Transmission Date: 20140711
  Serious: Yes (Hospitalization, Other)
  Sender: FDA-Public Use
  Company Number: PT-ROCHE-1265423

PATIENT
  Age: 3 Year
  Sex: Male

DRUGS (8)
  1. RIVOTRIL [Suspect]
     Indication: EPILEPSY
     Dosage: SOLUTION 2 TO 3 DROPS AS REQUIRED (2-3 GTT)
     Route: 048
  2. RIVOTRIL [Suspect]
     Indication: MYOCLONIC EPILEPSY
  3. DIACOMIT [Suspect]
     Indication: MYOCLONIC EPILEPSY
     Dosage: POWDER FOR ORAL SUSPENSION
     Route: 048
  4. DIACOMIT [Suspect]
     Dosage: POWDER FOR ORAL SUSPENSION
     Route: 048
     Dates: end: 20130818
  5. DIACOMIT [Suspect]
     Dosage: POWDER FOR ORAL SUSPENSION, STARTED ON /SEP/2013
     Route: 048
  6. DEPAKINE [Suspect]
     Indication: MYOCLONIC EPILEPSY
     Dosage: ORAL SOLUTION
     Route: 048
     Dates: end: 20130818
  7. DIPLEXIL [Concomitant]
     Dosage: 100 MG TWICE PER DAY, IN THE MORNING AND AT NIGHT
     Route: 065
     Dates: start: 20130917
  8. CASTILIUM [Concomitant]
     Indication: MYOCLONIC EPILEPSY
     Dosage: 5MG TWICE PER DAY, IN THE MORNING AND AT NIGHT, TABLETS ARE?DISSOLVED IN WATER
     Route: 048

REACTIONS (3)
  - Chromaturia [Recovered/Resolved]
  - Liver function test abnormal [Recovered/Resolved]
  - Herpes simplex hepatitis [Unknown]
